FAERS Safety Report 6940599-4 (Version None)
Quarter: 2010Q3

REPORT INFORMATION
  Report Type: 
  Country: None (occurrence: None)
  Receive Date: 20100820
  Receipt Date: 20100804
  Transmission Date: 20110219
  Serious: Yes (Other)
  Sender: FDA-Public Use
  Company Number: ACO_00964_2010

PATIENT
  Sex: Female
  Weight: 79.3795 kg

DRUGS (12)
  1. AMPYRA [Suspect]
     Indication: MULTIPLE SCLEROSIS
     Dosage: (10 MG BID ORAL)
     Route: 048
     Dates: start: 20100508
  2. GABAPENTIN [Concomitant]
  3. CLONAZEPAM [Concomitant]
  4. PLAVIX [Concomitant]
  5. COREG [Concomitant]
  6. POTASSIUM [Concomitant]
  7. DIGOXIN [Concomitant]
  8. FUROSEMIDE [Concomitant]
  9. SPIRONOLACTONE [Concomitant]
  10. RAMIPRIL [Concomitant]
  11. MULTI-VITAMINS [Concomitant]
  12. PROTANDIM [Concomitant]

REACTIONS (14)
  - APHASIA [None]
  - ASTHENIA [None]
  - CHILLS [None]
  - DEPRESSED LEVEL OF CONSCIOUSNESS [None]
  - DIZZINESS [None]
  - FALL [None]
  - FATIGUE [None]
  - FEELING ABNORMAL [None]
  - HALLUCINATION, VISUAL [None]
  - HYPERHIDROSIS [None]
  - MALAISE [None]
  - MEMORY IMPAIRMENT [None]
  - NAUSEA [None]
  - UNRESPONSIVE TO STIMULI [None]
